FAERS Safety Report 5384270-1 (Version None)
Quarter: 2007Q3

REPORT INFORMATION
  Report Type: 
  Country: None (occurrence: None)
  Receive Date: 20070710
  Receipt Date: 20061017
  Transmission Date: 20080115
  Serious: Yes (Hospitalization, Other)
  Sender: FDA-Public Use
  Company Number: 2006-01530

PATIENT
  Age: 45 Year
  Sex: Female
  Weight: 67.3 kg

DRUGS (10)
  1. VELCADE [Suspect]
     Indication: MULTIPLE MYELOMA
     Dosage: 1.30 MG/M2, INTRAVENOUS
     Route: 042
     Dates: start: 20060421, end: 20060522
  2. XANAX [Concomitant]
  3. FLEXERIL [Concomitant]
  4. NEXIUM [Concomitant]
  5. NIFEDIPINE [Concomitant]
  6. SYNTHROID [Concomitant]
  7. LORTAB [Concomitant]
  8. LASIX [Concomitant]
  9. COUMADIN [Concomitant]
  10. MS CONTIN [Concomitant]

REACTIONS (1)
  - PULMONARY HYPERTENSION [None]
